FAERS Safety Report 5324089-0 (Version None)
Quarter: 2007Q2

REPORT INFORMATION
  Report Type: 
  Country: None (occurrence: None)
  Receive Date: 20070514
  Receipt Date: 20060510
  Transmission Date: 20071010
  Serious: No
  Sender: FDA-Public Use
  Company Number: A0585492A

PATIENT
  Age: 73 Year
  Sex: Female

DRUGS (4)
  1. NABUMETONE [Suspect]
     Indication: RHEUMATOID ARTHRITIS
     Dosage: 500MG PER DAY
     Route: 048
     Dates: start: 20050501, end: 20051101
  2. DIOVAN [Concomitant]
  3. PRILOSEC [Concomitant]
  4. ACYCLOVIR [Concomitant]

REACTIONS (3)
  - DIARRHOEA [None]
  - DRUG INEFFECTIVE [None]
  - GASTROINTESTINAL DISORDER [None]
